FAERS Safety Report 11044388 (Version 3)
Quarter: 2016Q4

REPORT INFORMATION
  Report Type: Spontaneous
  Country: US (occurrence: US)
  Receive Date: 20150417
  Receipt Date: 20161222
  Transmission Date: 20170206
  Serious: No
  Sender: FDA-Public Use
  Company Number: US-PFIZER INC-2015128669

PATIENT
  Age: 75 Year
  Sex: Male
  Weight: 94 kg

DRUGS (17)
  1. INLYTA [Suspect]
     Active Substance: AXITINIB
     Dosage: 3 DF, UNK ( PILLS EVERY 12 HOURS)
     Dates: start: 2014
  2. HUMALOG [Concomitant]
     Active Substance: INSULIN LISPRO
     Indication: BLOOD GLUCOSE INCREASED
  3. ATORVASTATIN [Concomitant]
     Active Substance: ATORVASTATIN
     Indication: BLOOD CHOLESTEROL
     Dosage: 80 MG, 1X/DAY
     Dates: start: 2015
  4. ZANTAC [Concomitant]
     Active Substance: RANITIDINE HYDROCHLORIDE
     Indication: FLATULENCE
     Dosage: 75 MG, AS NEEDED
  5. VITAMIN D3 [Concomitant]
     Active Substance: CHOLECALCIFEROL
     Dosage: 1000 MG, 1X/DAY
  6. LANTUS [Concomitant]
     Active Substance: INSULIN GLARGINE
     Indication: BLOOD GLUCOSE INCREASED
  7. HUMALOG [Concomitant]
     Active Substance: INSULIN LISPRO
     Indication: DIABETES MELLITUS
     Dosage: UNK UNK, AS NEEDED (5-10 UNITS ONLY WHEN BLOOD SUGAR IS 200 OR MORE) (SIZE DISPENSED: U100)
     Dates: start: 2012
  8. TORSEMIDE. [Concomitant]
     Active Substance: TORSEMIDE
     Indication: FLUID RETENTION
     Dosage: 20 MG, 1X/DAY
  9. ZANTAC [Concomitant]
     Active Substance: RANITIDINE HYDROCHLORIDE
     Indication: DIARRHOEA
  10. CALCITRIOL. [Concomitant]
     Active Substance: CALCITRIOL
     Indication: DIALYSIS
     Dosage: 0.5 MG, UNK (THREE TIMES A WEEK WITH DIALYSIS)
     Dates: start: 201508
  11. AMLODIPINE [Concomitant]
     Active Substance: AMLODIPINE BESYLATE
     Indication: BLOOD PRESSURE MEASUREMENT
     Dosage: 5 MG, 2X/DAY
     Dates: start: 201610
  12. INLYTA [Suspect]
     Active Substance: AXITINIB
     Indication: RENAL CANCER
     Dosage: 5 MG, 2X/DAY
     Dates: start: 20150326
  13. INLYTA [Suspect]
     Active Substance: AXITINIB
     Indication: RENAL CANCER METASTATIC
     Dosage: 3 MG, 2X/DAY (THREE PILLS IN THE MORNING AND THREE PILLS AT NIGHT)
     Route: 048
     Dates: start: 2013
  14. LOPERAMIDE [Concomitant]
     Active Substance: LOPERAMIDE
     Indication: DIARRHOEA
     Dosage: UNK (TAKES 2 OR 3 PILLS WHEN HE GOES TO DIALYSIS THREE TIMES A WEEK)
  15. ASPIRIN. [Concomitant]
     Active Substance: ASPIRIN
     Indication: PROPHYLAXIS
     Dosage: 81 MG, UNK
     Dates: start: 1990
  16. LANTUS [Concomitant]
     Active Substance: INSULIN GLARGINE
     Indication: DIABETES MELLITUS
     Dosage: 25 IU, 1X/DAY (AT BEDTIME) (SIZE DISPENSED: 100U/MG)
     Dates: start: 2012
  17. VELPHORO [Concomitant]
     Active Substance: FERRIC OXYHYDROXIDE
     Dosage: 500 MG, 2X/DAY

REACTIONS (10)
  - Malaise [Unknown]
  - Lacrimation increased [Not Recovered/Not Resolved]
  - Asthenia [Unknown]
  - Dysphonia [Not Recovered/Not Resolved]
  - Bone disorder [Unknown]
  - Rhinorrhoea [Not Recovered/Not Resolved]
  - Diarrhoea [Unknown]
  - Dry eye [Unknown]
  - Muscular weakness [Unknown]
  - Nasopharyngitis [Unknown]

NARRATIVE: CASE EVENT DATE: 2015
